FAERS Safety Report 13742980 (Version 16)
Quarter: 2019Q1

REPORT INFORMATION
  Report Type: Spontaneous
  Country: FR (occurrence: FR)
  Receive Date: 20170711
  Receipt Date: 20190218
  Transmission Date: 20190417
  Serious: Yes (Other)
  Sender: FDA-Public Use
  Company Number: FR-TEVA-784596ROM

PATIENT
  Age: 79 Year
  Sex: Female
  Weight: 57 kg

DRUGS (47)
  1. POLARAMINE [Suspect]
     Active Substance: DEXCHLORPHENIRAMINE MALEATE
     Indication: ALLERGY PROPHYLAXIS
     Dosage: 10 MILLIGRAM DAILY; FIRST COURSE
     Route: 040
     Dates: start: 20161215, end: 20161215
  2. COTAREG [Concomitant]
     Active Substance: HYDROCHLOROTHIAZIDE\VALSARTAN
     Dosage: 1 DOSAGE FORMS DAILY; 160 MG VALSARTAN +12.5 MG HYDROCHLOROTHIAZIDE
     Route: 048
  3. KARDEGIC [Concomitant]
     Active Substance: ASPIRIN DL-LYSINE
     Dosage: 160 MILLIGRAM DAILY; 160 MG, QD
     Route: 048
  4. GLICLAZIDE [Concomitant]
     Active Substance: GLICLAZIDE
     Dosage: 12 MILLIGRAM DAILY;
     Route: 048
  5. HYDROCHLOROTHIAZIDE. [Concomitant]
     Active Substance: HYDROCHLOROTHIAZIDE
     Dosage: 12 MILLIGRAM DAILY;
     Route: 048
  6. POLARAMINE [Suspect]
     Active Substance: DEXCHLORPHENIRAMINE MALEATE
     Indication: DRUG TOXICITY PROPHYLAXIS
     Dosage: 10 MILLIGRAM DAILY;
     Route: 042
     Dates: start: 20161215, end: 20161215
  7. POLARAMINE [Suspect]
     Active Substance: DEXCHLORPHENIRAMINE MALEATE
     Indication: MANTLE CELL LYMPHOMA STAGE IV
     Dosage: 2 MILLIGRAM DAILY;
     Route: 042
     Dates: start: 20161215, end: 20161215
  8. POLARAMINE [Suspect]
     Active Substance: DEXCHLORPHENIRAMINE MALEATE
     Route: 040
     Dates: start: 20161215, end: 20161215
  9. SPECIAFOLDINE [Concomitant]
     Active Substance: FOLIC ACID
     Dosage: 2 DOSAGE FORMS DAILY;
     Route: 048
     Dates: start: 20161215
  10. GLICLAZIDE [Concomitant]
     Active Substance: GLICLAZIDE
     Dosage: 20 MILLIGRAM DAILY;
     Route: 048
  11. VALSARTAN. [Concomitant]
     Active Substance: VALSARTAN
     Dosage: 160 MILLIGRAM DAILY;
     Route: 048
  12. ONDANSETRON [Suspect]
     Active Substance: ONDANSETRON
     Indication: PROPHYLAXIS OF NAUSEA AND VOMITING
     Dosage: 8 MILLIGRAM DAILY;
     Route: 065
     Dates: start: 20161215, end: 20161215
  13. DIAMICRON [Concomitant]
     Active Substance: GLICLAZIDE
     Dosage: 60 MILLIGRAM DAILY;
     Route: 048
  14. GLICLAZIDE [Concomitant]
     Active Substance: GLICLAZIDE
     Dosage: 500 MILLIGRAM DAILY;
     Route: 048
     Dates: start: 20161215
  15. GLICLAZIDE [Concomitant]
     Active Substance: GLICLAZIDE
     Dosage: 12 MILLIGRAM DAILY;
     Route: 048
  16. GLICLAZIDE [Concomitant]
     Active Substance: GLICLAZIDE
     Dosage: 60 MILLIGRAM DAILY;
     Route: 048
  17. GLICLAZIDE [Concomitant]
     Active Substance: GLICLAZIDE
     Dosage: 20 MILLIGRAM DAILY;
     Route: 048
  18. HYDROCHLOROTHIAZIDE. [Concomitant]
     Active Substance: HYDROCHLOROTHIAZIDE
     Dosage: 12.5 MILLIGRAM DAILY;
     Route: 048
  19. MABTHERA [Suspect]
     Active Substance: RITUXIMAB
     Indication: MANTLE CELL LYMPHOMA STAGE IV
     Dosage: 600 MILLIGRAM DAILY; FIRST COURSE - R-CHOP PROTOCOL; 600 MG, ONE IN ONE CYCLE
     Route: 041
     Dates: start: 20161215, end: 20161215
  20. POLARAMINE [Suspect]
     Active Substance: DEXCHLORPHENIRAMINE MALEATE
     Indication: PROPHYLAXIS OF NAUSEA AND VOMITING
     Dosage: 8 MILLIGRAM DAILY;
     Route: 042
     Dates: start: 20161215, end: 20161215
  21. ZELITREX [Concomitant]
     Active Substance: VALACYCLOVIR HYDROCHLORIDE
     Dosage: 500 MILLIGRAM DAILY; 500 MG, QD
     Route: 048
     Dates: start: 20161215
  22. GLICLAZIDE [Concomitant]
     Active Substance: GLICLAZIDE
     Dosage: 1000 MILLIGRAM DAILY;
     Route: 048
  23. GLICLAZIDE [Concomitant]
     Active Substance: GLICLAZIDE
     Dosage: 60 MILLIGRAM DAILY;
     Route: 048
  24. GLICLAZIDE [Concomitant]
     Active Substance: GLICLAZIDE
     Dosage: 60 MILLIGRAM DAILY;
     Route: 048
  25. ENDOXAN [Suspect]
     Active Substance: CYCLOPHOSPHAMIDE
     Dosage: 1260 MILLIGRAM DAILY; 1260 MG, ONCE ; IN TOTAL
     Route: 065
     Dates: start: 20161215, end: 20161215
  26. MESNA EG 100 MG/ML [Suspect]
     Active Substance: MESNA
     Indication: DRUG TOXICITY PROPHYLAXIS
     Dosage: 1200 MILLIGRAM DAILY; FIRST COURSE
     Route: 040
     Dates: start: 20161215, end: 20161215
  27. METFORMINE 500 MG [Concomitant]
     Dosage: 1000 MILLIGRAM DAILY; 1 DF IN THE MORNING AND 1 DF IN THE NOON
     Route: 048
  28. PRAVASTATIN. [Concomitant]
     Active Substance: PRAVASTATIN
     Dosage: 20 MILLIGRAM DAILY;
     Route: 048
  29. KARDEGIC [Concomitant]
     Active Substance: ASPIRIN DL-LYSINE
     Dosage: 1 DOSAGE FORMS DAILY;
     Route: 048
  30. GLICLAZIDE [Concomitant]
     Active Substance: GLICLAZIDE
     Dosage: 20 MILLIGRAM DAILY;
     Route: 048
  31. GLICLAZIDE [Concomitant]
     Active Substance: GLICLAZIDE
     Dosage: 160 MILLIGRAM DAILY;
     Route: 048
  32. GLICLAZIDE [Concomitant]
     Active Substance: GLICLAZIDE
     Dosage: 12 MILLIGRAM DAILY;
     Route: 048
  33. DOXORUBICIN TEVA [Suspect]
     Active Substance: DOXORUBICIN
     Dosage: 84 MILLIGRAM DAILY;
     Route: 065
     Dates: start: 20161215, end: 20161215
  34. BACTRIM [Concomitant]
     Active Substance: SULFAMETHOXAZOLE\TRIMETHOPRIM
     Dosage: 1 DOSAGE FORM TIW
     Route: 048
     Dates: start: 20161215
  35. GLICLAZIDE [Concomitant]
     Active Substance: GLICLAZIDE
     Dosage: 160 MILLIGRAM DAILY;
     Route: 048
  36. GLICLAZIDE [Concomitant]
     Active Substance: GLICLAZIDE
     Route: 048
  37. GLICLAZIDE [Concomitant]
     Active Substance: GLICLAZIDE
     Dosage: 1000 MILLIGRAM DAILY;
     Route: 048
  38. DOXORUBICIN TEVA [Suspect]
     Active Substance: DOXORUBICIN
     Indication: MANTLE CELL LYMPHOMA STAGE IV
     Dosage: 84 MILLIGRAM DAILY; FIRST COURSE -R-CHOP PROTOCOL; 84 MG, ONCE
     Route: 041
     Dates: start: 20161215, end: 20161215
  39. VINCRISTINE [Suspect]
     Active Substance: VINCRISTINE
     Indication: DRUG TOXICITY PROPHYLAXIS
     Route: 042
     Dates: start: 20161215, end: 20161215
  40. POLARAMINE [Suspect]
     Active Substance: DEXCHLORPHENIRAMINE MALEATE
     Indication: ALLERGY PROPHYLAXIS
     Route: 042
     Dates: start: 20161215, end: 20161215
  41. GLICLAZIDE [Concomitant]
     Active Substance: GLICLAZIDE
     Dosage: 160 MILLIGRAM DAILY;
     Route: 048
  42. VALACYCLOVIR HYDROCHLORIDE. [Concomitant]
     Active Substance: VALACYCLOVIR HYDROCHLORIDE
     Route: 048
     Dates: start: 20161215
  43. VINCRISTINE [Suspect]
     Active Substance: VINCRISTINE
     Indication: PROPHYLAXIS OF NAUSEA AND VOMITING
     Dosage: 8 MILLIGRAM DAILY;
     Route: 042
     Dates: start: 20161215, end: 20161215
  44. VINCRISTINE [Suspect]
     Active Substance: VINCRISTINE
     Indication: MANTLE CELL LYMPHOMA STAGE IV
     Dosage: 2 MILLIGRAM DAILY;
     Route: 042
     Dates: start: 20161215, end: 20161215
  45. ENDOXAN [Suspect]
     Active Substance: CYCLOPHOSPHAMIDE
     Indication: MANTLE CELL LYMPHOMA STAGE IV
     Dosage: 1260 MILLIGRAM DAILY; FIRST COURSE - R-CHOP PROTOCOL; 1260 MG, ONCE
     Route: 041
     Dates: start: 20161215, end: 20161215
  46. SPECIAFOLDINE [Concomitant]
     Active Substance: FOLIC ACID
     Dosage: 10 MILLIGRAM DAILY;
     Route: 048
     Dates: start: 20161215
  47. GLICLAZIDE [Concomitant]
     Active Substance: GLICLAZIDE
     Dosage: 1000 MILLIGRAM DAILY;
     Route: 048

REACTIONS (1)
  - Polyarthritis [Recovered/Resolved]

NARRATIVE: CASE EVENT DATE: 201612
